FAERS Safety Report 21842761 (Version 1)
Quarter: 2023Q1

REPORT INFORMATION
  Report Type: Spontaneous
  Country: US (occurrence: US)
  Receive Date: 20230110
  Receipt Date: 20230110
  Transmission Date: 20230417
  Serious: No
  Sender: FDA-Public Use
  Company Number: US-ALKERMES INC.-ALK-2023-000010

PATIENT

DRUGS (1)
  1. LYBALVI [Suspect]
     Active Substance: OLANZAPINE\SAMIDORPHAN L-MALATE
     Indication: Product used for unknown indication
     Dosage: 20 MG/10 MG, QD
     Route: 048
     Dates: end: 20230103

REACTIONS (3)
  - Disturbance in social behaviour [Unknown]
  - Insomnia [Unknown]
  - Scatolia [Unknown]
